FAERS Safety Report 7370335-1 (Version None)
Quarter: 2011Q1

REPORT INFORMATION
  Report Type: 
  Country: None (occurrence: None)
  Receive Date: 20110323
  Receipt Date: 20110321
  Transmission Date: 20110831
  Serious: Yes (Hospitalization)
  Sender: FDA-Public Use
  Company Number: NO-NAPPMUNDI-GBR-2011-0007929

PATIENT
  Age: 74 Year
  Sex: Male
  Weight: 79 kg

DRUGS (7)
  1. GOSERELIN [Concomitant]
  2. PARACETAMOL [Concomitant]
  3. DALTEPARIN SODIUM [Concomitant]
  4. DOCETAXEL [Concomitant]
  5. PREDNISONE [Concomitant]
  6. OXYCODONE HYDROCHLORIDE [Suspect]
     Indication: PRODUCT USED FOR UNKNOWN INDICATION
     Route: 065
  7. ZOPICLONE [Concomitant]

REACTIONS (1)
  - FEBRILE NEUTROPENIA [None]
